FAERS Safety Report 17133532 (Version 1)
Quarter: 2019Q4

REPORT INFORMATION
  Report Type: Spontaneous
  Country: US (occurrence: US)
  Receive Date: 20191118
  Receipt Date: 20191118
  Transmission Date: 20200122
  Serious: No
  Sender: FDA-Public Use
  Company Number: None

PATIENT
  Age: 45 Year
  Sex: Male

DRUGS (1)
  1. GRANIX [Suspect]
     Active Substance: TBO-FILGRASTIM
     Indication: CYSTIC FIBROSIS
     Dosage: ?          OTHER STRENGTH:480MCG/.8;OTHER DOSE:480MCG/.8;?
     Route: 058

REACTIONS (3)
  - Body temperature increased [None]
  - Therapy cessation [None]
  - Product availability issue [None]

NARRATIVE: CASE EVENT DATE: 20191114
